FAERS Safety Report 21939225 (Version 1)
Quarter: 2023Q1

REPORT INFORMATION
  Report Type: Spontaneous
  Country: PL (occurrence: PL)
  Receive Date: 20230201
  Receipt Date: 20230201
  Transmission Date: 20230417
  Serious: Yes (Other)
  Sender: FDA-Public Use
  Company Number: PL-EXELIXIS-CABO-22056170

PATIENT
  Age: 67 Year
  Sex: Male

DRUGS (1)
  1. CABOMETYX [Suspect]
     Active Substance: CABOZANTINIB S-MALATE
     Indication: Metastatic renal cell carcinoma
     Dosage: 60 MG, QD
     Route: 048
     Dates: start: 20200518, end: 20220203

REACTIONS (2)
  - Hypertension [Recovered/Resolved]
  - Rectal adenocarcinoma [Unknown]
